FAERS Safety Report 18283139 (Version 4)
Quarter: 2021Q2

REPORT INFORMATION
  Report Type: Report from Study
  Country: DE (occurrence: DE)
  Receive Date: 20200918
  Receipt Date: 20210430
  Transmission Date: 20210717
  Serious: Yes (Hospitalization, Other)
  Sender: FDA-Public Use
  Company Number: DE-SHIRE-DE202017985

PATIENT
  Age: 3 Year
  Sex: Female
  Weight: 12 kg

DRUGS (20)
  1. TEDUGLUTIDE [Suspect]
     Active Substance: TEDUGLUTIDE
     Indication: SHORT-BOWEL SYNDROME
     Dosage: 1.25 MILLIGRAM, 1X/DAY:QD
     Route: 058
     Dates: start: 20190510, end: 20201025
  2. TEDUGLUTIDE [Suspect]
     Active Substance: TEDUGLUTIDE
     Indication: SHORT-BOWEL SYNDROME
     Dosage: 1.25 MILLIGRAM, 1X/DAY:QD
     Route: 058
     Dates: start: 20190510, end: 20201025
  3. TEDUGLUTIDE [Suspect]
     Active Substance: TEDUGLUTIDE
     Dosage: 0.22 MILLILITER, 1X/DAY:QD
     Route: 058
     Dates: start: 20210110
  4. TEDUGLUTIDE [Suspect]
     Active Substance: TEDUGLUTIDE
     Dosage: 0.26 MILLIGRAM, QD
     Route: 058
     Dates: end: 20210420
  5. TEDUGLUTIDE [Suspect]
     Active Substance: TEDUGLUTIDE
     Dosage: 0.22 MILLILITER, 1X/DAY:QD
     Route: 058
     Dates: start: 20210110
  6. TEDUGLUTIDE [Suspect]
     Active Substance: TEDUGLUTIDE
     Dosage: 0.22 MILLILITER, 1X/DAY:QD
     Route: 058
     Dates: start: 20210110
  7. TEDUGLUTIDE [Suspect]
     Active Substance: TEDUGLUTIDE
     Dosage: 0.22 MILLILITER, 1X/DAY:QD
     Route: 058
     Dates: start: 20210110
  8. TEDUGLUTIDE [Suspect]
     Active Substance: TEDUGLUTIDE
     Dosage: 0.26 MILLIGRAM, QD
     Route: 058
     Dates: end: 20210420
  9. TEDUGLUTIDE [Suspect]
     Active Substance: TEDUGLUTIDE
     Indication: SHORT-BOWEL SYNDROME
     Dosage: 1.25 MILLIGRAM, 1X/DAY:QD
     Route: 058
     Dates: start: 20190510, end: 20201025
  10. TEDUGLUTIDE [Suspect]
     Active Substance: TEDUGLUTIDE
     Dosage: 0.22 MILLILITER, 1X/DAY:QD
     Route: 058
     Dates: start: 20190510
  11. TEDUGLUTIDE [Suspect]
     Active Substance: TEDUGLUTIDE
     Dosage: 0.22 MILLILITER, 1X/DAY:QD
     Route: 058
     Dates: start: 20190510
  12. TEDUGLUTIDE [Suspect]
     Active Substance: TEDUGLUTIDE
     Dosage: 0.22 MILLILITER, 1X/DAY:QD
     Route: 058
     Dates: start: 20210110
  13. TEDUGLUTIDE [Suspect]
     Active Substance: TEDUGLUTIDE
     Dosage: 0.22 MILLILITER, 1X/DAY:QD
     Route: 058
     Dates: start: 20210110
  14. TEDUGLUTIDE [Suspect]
     Active Substance: TEDUGLUTIDE
     Dosage: 0.22 MILLILITER, 1X/DAY:QD
     Route: 058
     Dates: start: 20210110
  15. TEDUGLUTIDE [Suspect]
     Active Substance: TEDUGLUTIDE
     Indication: SHORT-BOWEL SYNDROME
     Dosage: 1.25 MILLIGRAM, 1X/DAY:QD
     Route: 058
     Dates: start: 20190510, end: 20201025
  16. TEDUGLUTIDE [Suspect]
     Active Substance: TEDUGLUTIDE
     Dosage: 0.22 MILLILITER, 1X/DAY:QD
     Route: 058
     Dates: start: 20190510
  17. TEDUGLUTIDE [Suspect]
     Active Substance: TEDUGLUTIDE
     Dosage: 0.22 MILLILITER, 1X/DAY:QD
     Route: 058
     Dates: start: 20190510
  18. TEDUGLUTIDE [Suspect]
     Active Substance: TEDUGLUTIDE
     Dosage: 0.22 MILLILITER, 1X/DAY:QD
     Route: 058
     Dates: start: 20210110
  19. TEDUGLUTIDE [Suspect]
     Active Substance: TEDUGLUTIDE
     Dosage: 0.26 MILLIGRAM, QD
     Route: 058
     Dates: end: 20210420
  20. TEDUGLUTIDE [Suspect]
     Active Substance: TEDUGLUTIDE
     Dosage: 0.26 MILLIGRAM, QD
     Route: 058
     Dates: end: 20210420

REACTIONS (11)
  - Abdominal distension [Recovered/Resolved]
  - Vessel puncture site erythema [Recovered/Resolved]
  - Gastrostomy [Recovered/Resolved]
  - Abdominal pain [Unknown]
  - Blood gases abnormal [Unknown]
  - Diarrhoea [Unknown]
  - Small intestinal obstruction [Not Recovered/Not Resolved]
  - Lactic acidosis [Recovered/Resolved]
  - Constipation [Recovered/Resolved]
  - Weight increased [Unknown]
  - Central venous catheterisation [Recovered/Resolved]

NARRATIVE: CASE EVENT DATE: 20200529
